FAERS Safety Report 9965543 (Version 1)
Quarter: 2014Q1

REPORT INFORMATION
  Report Type: Report from Study
  Country: US (occurrence: US)
  Receive Date: 20140305
  Receipt Date: 20140305
  Transmission Date: 20141002
  Serious: No
  Sender: FDA-Public Use
  Company Number: US-ABBVIE-13P-163-1125582-00

PATIENT
  Sex: Male

DRUGS (14)
  1. HUMIRA [Suspect]
     Indication: CROHN^S DISEASE
     Dates: start: 20130514, end: 201307
  2. HUMIRA [Suspect]
     Dates: start: 201307
  3. SIMVASTATIN [Concomitant]
     Indication: BLOOD CHOLESTEROL INCREASED
  4. FLOMAX [Concomitant]
     Indication: URINE FLOW DECREASED
  5. BLUE PILL [Concomitant]
     Indication: PROSTATIC DISORDER
  6. NOVOLOG [Concomitant]
     Indication: DIABETES MELLITUS
     Dosage: WHEN BLOOD SUGAR IS GREATER THAN 140
  7. GLYPIZIDE [Concomitant]
     Indication: DIABETES MELLITUS
  8. AMBIEN [Concomitant]
     Indication: INSOMNIA
     Dosage: AT SLEEP
  9. MEDICINE [Concomitant]
     Indication: CROHN^S DISEASE
  10. VIT D [Concomitant]
     Indication: PRODUCT USED FOR UNKNOWN INDICATION
  11. VITAMIN B6 [Concomitant]
     Indication: PRODUCT USED FOR UNKNOWN INDICATION
  12. POTASSIUM [Concomitant]
     Indication: PRODUCT USED FOR UNKNOWN INDICATION
  13. IRON [Concomitant]
     Indication: ANAEMIA
  14. SOMETHING NEW THAT STARTS WITH A U [Concomitant]
     Indication: PRODUCT USED FOR UNKNOWN INDICATION

REACTIONS (1)
  - Inappropriate schedule of drug administration [Not Recovered/Not Resolved]
